FAERS Safety Report 6209205-0 (Version None)
Quarter: 2009Q2

REPORT INFORMATION
  Report Type: 
  Country: None (occurrence: None)
  Receive Date: 20090529
  Receipt Date: 20090519
  Transmission Date: 20091009
  Serious: Yes (Hospitalization)
  Sender: FDA-Public Use
  Company Number: GB-JNJFOC-20090504621

PATIENT
  Sex: Male
  Weight: 82 kg

DRUGS (11)
  1. REMICADE [Suspect]
     Route: 042
  2. REMICADE [Suspect]
     Indication: RHEUMATOID ARTHRITIS
     Route: 042
  3. PREDNISOLONE [Concomitant]
     Route: 048
  4. NAPROXEN [Concomitant]
  5. FLOXACILLIN SODIUM [Concomitant]
  6. CALCI-CHEW [Concomitant]
     Route: 048
  7. ACETAMINOPHEN WITH PROPOXYPHENE HCL TAB [Concomitant]
  8. ASPIRIN [Concomitant]
     Route: 048
  9. ALENDRONATE SODIUM [Concomitant]
     Route: 048
  10. LANSOPRAZOLE [Concomitant]
     Route: 048
  11. SIMVASTATIN [Concomitant]
     Route: 048

REACTIONS (2)
  - INFARCTION [None]
  - RHEUMATOID VASCULITIS [None]
